FAERS Safety Report 17782094 (Version 1)
Quarter: 2020Q2

REPORT INFORMATION
  Report Type: Spontaneous
  Country: US (occurrence: US)
  Receive Date: 20200513
  Receipt Date: 20200513
  Transmission Date: 20200714
  Serious: No
  Sender: FDA-Public Use
  Company Number: None

PATIENT
  Age: 68 Year
  Sex: Female
  Weight: 63 kg

DRUGS (4)
  1. NITROFURANTOIN MONO- MCR 100 MG [Suspect]
     Active Substance: NITROFURANTOIN MONOHYDRATE
     Indication: URINARY TRACT INFECTION
     Route: 048
     Dates: start: 20200427, end: 20200503
  2. ONCE A DAY MULTIVITAMIN [Concomitant]
  3. HRT THERAPY [Concomitant]
  4. RIZATRIPTAN. [Concomitant]
     Active Substance: RIZATRIPTAN

REACTIONS (14)
  - Melaena [None]
  - Heart rate increased [None]
  - Abdominal discomfort [None]
  - Peripheral swelling [None]
  - Sensitive skin [None]
  - Headache [None]
  - Urticaria [None]
  - Dyspnoea [None]
  - Dizziness [None]
  - Eye pain [None]
  - Pain of skin [None]
  - Pruritus [None]
  - Insomnia [None]
  - Neuropathy peripheral [None]

NARRATIVE: CASE EVENT DATE: 20200505
